FAERS Safety Report 4752074-6 (Version None)
Quarter: 2005Q3

REPORT INFORMATION
  Report Type: 
  Country: None (occurrence: None)
  Receive Date: 20050822
  Receipt Date: 20050713
  Transmission Date: 20060218
  Serious: No
  Sender: FDA-Public Use
  Company Number: PHEH2005US07809

PATIENT
  Age: 59 Year
  Sex: Female

DRUGS (6)
  1. ZELNORM [Suspect]
     Indication: IRRITABLE BOWEL SYNDROME
     Dosage: SEE IMAGE
     Dates: start: 20050101
  2. ZELNORM [Suspect]
     Indication: IRRITABLE BOWEL SYNDROME
     Dosage: SEE IMAGE
     Dates: start: 20050601
  3. ZELNORM [Suspect]
     Indication: IRRITABLE BOWEL SYNDROME
     Dosage: SEE IMAGE
     Dates: start: 20050601
  4. PROZAC [Concomitant]
  5. CLONAZEPAM [Concomitant]
  6. LIPITOR [Concomitant]

REACTIONS (3)
  - CONSTIPATION [None]
  - DRUG INEFFECTIVE [None]
  - IRRITABLE BOWEL SYNDROME [None]
